FAERS Safety Report 9707968 (Version 2)
Quarter: 2014Q3

REPORT INFORMATION
  Report Type: Spontaneous
  Country: US (occurrence: US)
  Receive Date: 20131125
  Receipt Date: 20140818
  Transmission Date: 20150326
  Serious: Yes (Death, Hospitalization, Other)
  Sender: FDA-Public Use
  Company Number: US-009507513-1311USA009892

PATIENT
  Sex: Male
  Weight: 127.89 kg

DRUGS (1)
  1. JANUVIA [Suspect]
     Active Substance: SITAGLIPTIN PHOSPHATE
     Indication: TYPE 2 DIABETES MELLITUS
     Dosage: 100 MG, QD
     Route: 048
     Dates: start: 20081231, end: 20100108

REACTIONS (17)
  - Septic shock [Unknown]
  - Renal failure acute [Unknown]
  - Multi-organ failure [Unknown]
  - Headache [Unknown]
  - Ventricular tachycardia [Unknown]
  - Ischaemic hepatitis [Unknown]
  - Cardio-respiratory arrest [Unknown]
  - Adenocarcinoma pancreas [Fatal]
  - Anuria [Unknown]
  - Metastases to lymph nodes [Unknown]
  - Respiratory failure [Unknown]
  - Coagulopathy [Unknown]
  - Metastases to liver [Unknown]
  - Hypokalaemia [Unknown]
  - Bacterial infection [Unknown]
  - Metabolic acidosis [Unknown]
  - Candida infection [Unknown]

NARRATIVE: CASE EVENT DATE: 201101
